FAERS Safety Report 13182678 (Version 2)
Quarter: 2017Q1

REPORT INFORMATION
  Report Type: Spontaneous
  Country: US (occurrence: US)
  Receive Date: 20170203
  Receipt Date: 20170330
  Transmission Date: 20170428
  Serious: No
  Sender: FDA-Public Use
  Company Number: US-PFIZER INC-2017045573

PATIENT
  Age: 58 Year
  Sex: Male

DRUGS (1)
  1. SUTENT [Suspect]
     Active Substance: SUNITINIB MALATE
     Indication: RENAL CANCER
     Dosage: 50 MG, CYCLIC (28 DAYS ON AND 14 OFF)

REACTIONS (3)
  - Blister [Recovering/Resolving]
  - Skin exfoliation [Recovering/Resolving]
  - Pain in extremity [Recovering/Resolving]
